FAERS Safety Report 7110190-8 (Version None)
Quarter: 2010Q4

REPORT INFORMATION
  Report Type: 
  Country: None (occurrence: None)
  Receive Date: 20101118
  Receipt Date: 20101105
  Transmission Date: 20110411
  Serious: Yes (Hospitalization)
  Sender: FDA-Public Use
  Company Number: NL-MEDIMMUNE-MEDI-0011593

PATIENT
  Sex: Male
  Weight: 4.04 kg

DRUGS (2)
  1. SYNAGIS [Suspect]
     Route: 051
     Dates: start: 20100907, end: 20100907
  2. SYNAGIS [Suspect]
     Route: 051
     Dates: start: 20101011

REACTIONS (6)
  - COUGH [None]
  - DIARRHOEA [None]
  - DYSPNOEA [None]
  - INFANTILE SPITTING UP [None]
  - PNEUMONIA [None]
  - PYREXIA [None]
